FAERS Safety Report 13903737 (Version 1)
Quarter: 2017Q3

REPORT INFORMATION
  Report Type: Spontaneous
  Country: US (occurrence: US)
  Receive Date: 20170824
  Receipt Date: 20170824
  Transmission Date: 20171127
  Serious: Yes (Other)
  Sender: FDA-Public Use
  Company Number: US-TEVA-800343USA

PATIENT
  Age: 66 Year
  Sex: Male

DRUGS (2)
  1. OMEPRAZOLE DELAYED RELEASE CAPSULES,10 MG, 20 MG AND 30 MG [Suspect]
     Active Substance: OMEPRAZOLE
     Route: 065
  2. DILTIAZEM. [Suspect]
     Active Substance: DILTIAZEM
     Route: 065

REACTIONS (1)
  - Subacute cutaneous lupus erythematosus [Recovered/Resolved]
